FAERS Safety Report 10203927 (Version 2)
Quarter: 2014Q2

REPORT INFORMATION
  Report Type: Spontaneous
  Country: JP (occurrence: JP)
  Receive Date: 20140529
  Receipt Date: 20140529
  Transmission Date: 20141212
  Serious: Yes (Hospitalization, Other)
  Sender: FDA-Public Use
  Company Number: PHHY2013JP004489

PATIENT
  Sex: Male
  Weight: 45.2 kg

DRUGS (5)
  1. CEFTRIAXONE SODIUM [Suspect]
     Indication: APPENDICITIS
     Dosage: 2 G, UNK
     Route: 042
  2. CEFTRIAXONE SODIUM [Suspect]
     Indication: ENTEROCOLITIS BACTERIAL
  3. CEFOTIAM HYDROCHLORIDE [Concomitant]
  4. CLARITHROMYCIN [Concomitant]
  5. CEFCAPENE PIVOXIL HYDROCHLORIDE [Concomitant]

REACTIONS (7)
  - Renal failure acute [Recovering/Resolving]
  - Renal impairment [Recovering/Resolving]
  - Oliguria [Recovering/Resolving]
  - Oedema [Recovering/Resolving]
  - Abdominal pain [Recovering/Resolving]
  - Tubulointerstitial nephritis [Recovering/Resolving]
  - Diarrhoea [Recovering/Resolving]
